FAERS Safety Report 6568652-8 (Version None)
Quarter: 2010Q1

REPORT INFORMATION
  Report Type: 
  Country: None (occurrence: None)
  Receive Date: 20100203
  Receipt Date: 20100121
  Transmission Date: 20100710
  Serious: Yes (Other)
  Sender: FDA-Public Use
  Company Number: PHHY2010BR03665

PATIENT
  Age: 88 Year
  Sex: Female
  Weight: 50 kg

DRUGS (2)
  1. DIOVAN AMLO [Suspect]
     Indication: HYPERTENSION
     Dosage: 1 TABLET PER DAY
     Route: 048
     Dates: start: 20060101
  2. MEMANTINE HCL [Concomitant]
     Indication: CENTRAL NERVOUS SYSTEM LESION
     Dosage: 10 MG, BID
     Dates: start: 20100101

REACTIONS (4)
  - BLOOD PRESSURE INCREASED [None]
  - EYE HAEMORRHAGE [None]
  - HYPOTENSION [None]
  - OCULAR VASCULAR DISORDER [None]
